FAERS Safety Report 24391804 (Version 1)
Quarter: 2024Q4

REPORT INFORMATION
  Report Type: Spontaneous
  Country: GB (occurrence: GB)
  Receive Date: 20241003
  Receipt Date: 20241003
  Transmission Date: 20250115
  Serious: Yes (Other)
  Sender: TORRENT
  Company Number: None

PATIENT
  Age: 29 Year
  Sex: Female

DRUGS (1)
  1. LAMOTRIGINE [Suspect]
     Active Substance: LAMOTRIGINE
     Indication: Product used for unknown indication
     Dosage: 200MG
     Route: 065
     Dates: start: 20230601

REACTIONS (7)
  - Night sweats [Recovering/Resolving]
  - Memory impairment [Recovering/Resolving]
  - Alopecia [Not Recovered/Not Resolved]
  - Myoclonus [Recovering/Resolving]
  - Condition aggravated [Unknown]
  - Feeling of despair [Unknown]
  - Depression [Unknown]

NARRATIVE: CASE EVENT DATE: 20240101
